FAERS Safety Report 11741911 (Version 1)
Quarter: 2015Q4

REPORT INFORMATION
  Report Type: Report from Study
  Country: US (occurrence: US)
  Receive Date: 20151116
  Receipt Date: 20151116
  Transmission Date: 20160304
  Serious: No
  Sender: FDA-Public Use
  Company Number: PHEH2014US018595

PATIENT
  Age: 46 Year
  Sex: Female
  Weight: 98.41 kg

DRUGS (2)
  1. GILENYA [Suspect]
     Active Substance: FINGOLIMOD HYDROCHLORIDE
     Indication: MULTIPLE SCLEROSIS
     Dosage: 0.5 MG, QD
     Route: 048
     Dates: start: 201310
  2. VITAMIN D [Concomitant]
     Active Substance: CHOLECALCIFEROL
     Indication: VITAMIN D DEFICIENCY
     Dosage: 50000 U, PER 8 WEEKS
     Route: 065

REACTIONS (6)
  - Eye haemorrhage [Recovered/Resolved]
  - Chest pain [Unknown]
  - Multiple sclerosis relapse [Unknown]
  - Bronchitis [Recovered/Resolved]
  - Headache [Unknown]
  - Cough [Not Recovered/Not Resolved]

NARRATIVE: CASE EVENT DATE: 201410
